FAERS Safety Report 10992692 (Version 2)
Quarter: 2016Q4

REPORT INFORMATION
  Report Type: Report from Study
  Country: JP (occurrence: JP)
  Receive Date: 20150406
  Receipt Date: 20161109
  Transmission Date: 20170206
  Serious: Yes (Other)
  Sender: FDA-Public Use
  Company Number: JP-TAKEDA-2015TUS004257

PATIENT
  Age: 84 Year
  Sex: Male
  Weight: 43.1 kg

DRUGS (12)
  1. FEBUXOSTAT. [Suspect]
     Active Substance: FEBUXOSTAT
     Dosage: 40 MG, QD
     Route: 048
     Dates: start: 20130221, end: 201302
  2. TAKEPRON [Concomitant]
     Active Substance: LANSOPRAZOLE
     Indication: GASTROOESOPHAGEAL REFLUX DISEASE
     Dosage: UNK, QD
     Route: 048
     Dates: start: 20130207, end: 20130606
  3. ANCARON [Concomitant]
     Active Substance: AMIODARONE HYDROCHLORIDE
     Indication: ARRHYTHMIA
     Dosage: UNK
     Route: 048
     Dates: start: 20130211, end: 20130606
  4. TANATRIL [Concomitant]
     Active Substance: IMIDAPRIL
     Indication: DIABETES MELLITUS
     Dosage: UNK, QD
     Route: 048
     Dates: start: 20130205, end: 20130530
  5. ARTIST [Concomitant]
     Active Substance: CARVEDILOL
     Indication: HYPERTENSION
     Dosage: 2.5 MG, UNK
     Route: 048
     Dates: start: 20130207, end: 20130606
  6. FEBUXOSTAT. [Suspect]
     Active Substance: FEBUXOSTAT
     Dosage: 20 MG, QD
     Route: 048
     Dates: start: 201302, end: 20130228
  7. LASIX [Concomitant]
     Active Substance: FUROSEMIDE
     Indication: HYPERTENSION
     Dosage: 20 MG, QD
     Route: 048
     Dates: start: 20130207, end: 20130606
  8. FEBUXOSTAT. [Suspect]
     Active Substance: FEBUXOSTAT
     Indication: HYPERURICAEMIA
     Dosage: 20 MG, QD
     Route: 048
     Dates: start: 20130211, end: 20130220
  9. ALDACTONE A [Concomitant]
     Active Substance: SPIRONOLACTONE
     Indication: HYPERTENSION
     Dosage: 50 MG, QD
     Route: 048
     Dates: start: 20130207, end: 20130606
  10. LACTULOSE. [Concomitant]
     Active Substance: LACTULOSE
     Indication: HEPATIC ENCEPHALOPATHY
     Dosage: 30 ML, TID
     Route: 048
     Dates: start: 20130308, end: 20130606
  11. BAYASPIRIN [Concomitant]
     Active Substance: ASPIRIN
     Indication: ANGINA PECTORIS
     Dosage: 100 MG, QD
     Route: 048
     Dates: start: 20130207, end: 20130606
  12. FEBUXOSTAT. [Suspect]
     Active Substance: FEBUXOSTAT
     Dosage: 20 MG, QD
     Route: 048
     Dates: start: 20130307

REACTIONS (2)
  - Prothrombin time prolonged [Recovering/Resolving]
  - Coma hepatic [Recovering/Resolving]

NARRATIVE: CASE EVENT DATE: 20130228
